FAERS Safety Report 8924488 (Version 2)
Quarter: 2012Q4

REPORT INFORMATION
  Report Type: 
  Country: IT (occurrence: IT)
  Receive Date: 20121127
  Receipt Date: 20121203
  Transmission Date: 20130627
  Serious: Yes (Hospitalization)
  Sender: FDA-Public Use
  Company Number: IT-009507513-1211ITA009288

PATIENT
  Age: 48 Year
  Sex: Female

DRUGS (4)
  1. TRILAFON [Suspect]
     Indication: PSYCHOTIC DISORDER
     Dosage: 4 mg, qd
     Route: 048
     Dates: start: 20121022, end: 20121026
  2. BROMAZEPAM [Suspect]
     Indication: ANXIETY
     Dosage: UNK
     Route: 048
     Dates: start: 20121022, end: 20121026
  3. VALIUM [Concomitant]
     Route: 048
  4. ZYPREXA [Concomitant]
     Route: 048

REACTIONS (1)
  - Epilepsy [Unknown]
